FAERS Safety Report 7672899-7 (Version None)
Quarter: 2011Q3

REPORT INFORMATION
  Report Type: 
  Country: None (occurrence: None)
  Receive Date: 20110809
  Receipt Date: 20110802
  Transmission Date: 20111222
  Serious: Yes (Hospitalization)
  Sender: FDA-Public Use
  Company Number: US-GENENTECH-322124

PATIENT
  Age: 65 Year
  Sex: Male

DRUGS (8)
  1. RITUXAN [Suspect]
     Dosage: 700 MG, Q3M
     Route: 042
     Dates: start: 20090201
  2. IMMUNE GLOBULIN INTRAVENOUS (HUMAN) [Concomitant]
     Indication: PRODUCT USED FOR UNKNOWN INDICATION
  3. RITUXAN [Suspect]
     Indication: MANTLE CELL LYMPHOMA
     Dosage: 375 MG/M2, Q3M
     Route: 042
     Dates: start: 20090201
  4. ANTIVIRAL [Concomitant]
     Indication: PRODUCT USED FOR UNKNOWN INDICATION
  5. DEXAMETHASONE [Concomitant]
     Indication: PRODUCT USED FOR UNKNOWN INDICATION
  6. NEUPOGEN [Concomitant]
     Indication: PRODUCT USED FOR UNKNOWN INDICATION
  7. ANTIBIOTIC (UNK INGREDIENTS) [Concomitant]
     Indication: PRODUCT USED FOR UNKNOWN INDICATION
  8. CLADRIBINE [Suspect]
     Indication: MANTLE CELL LYMPHOMA
     Dosage: UNK
     Dates: start: 20090201

REACTIONS (4)
  - AGRANULOCYTOSIS [None]
  - PNEUMONIA [None]
  - NEUTROPENIA [None]
  - RASH GENERALISED [None]
